FAERS Safety Report 22225735 (Version 2)
Quarter: 2023Q2

REPORT INFORMATION
  Report Type: Report from Study
  Country: US (occurrence: US)
  Receive Date: 20230418
  Receipt Date: 20230427
  Transmission Date: 20230722
  Serious: Yes (Hospitalization, Other)
  Sender: FDA-Public Use
  Company Number: US-ABBVIE-4732862

PATIENT
  Sex: Female

DRUGS (2)
  1. DUOPA [Suspect]
     Active Substance: CARBIDOPA\LEVODOPA
     Indication: Parkinson^s disease
     Dosage: MORNING DOSE: 4.9ML, CONTINUOUS DOSE: 3.7ML/HOUR, EXTRA DOSE: 1.5ML EVERY 2 HOURS
     Route: 050
     Dates: start: 20220613
  2. DUOPA [Suspect]
     Active Substance: CARBIDOPA\LEVODOPA

REACTIONS (3)
  - Deep vein thrombosis [Recovering/Resolving]
  - Stoma site discharge [Unknown]
  - Urinary tract infection [Recovered/Resolved]
